FAERS Safety Report 10768931 (Version 2)
Quarter: 2016Q1

REPORT INFORMATION
  Report Type: Other
  Country: US (occurrence: US)
  Receive Date: 20150206
  Receipt Date: 20160217
  Transmission Date: 20160525
  Serious: No
  Sender: FDA-Public Use
  Company Number: US-ACORDA-ACO_104847_2014

PATIENT
  Sex: Female

DRUGS (2)
  1. TECFIDERA [Suspect]
     Active Substance: DIMETHYL FUMARATE
     Indication: PRODUCT USED FOR UNKNOWN INDICATION
     Dosage: 240 MG
     Route: 065
  2. AMPYRA [Suspect]
     Active Substance: DALFAMPRIDINE
     Indication: MULTIPLE SCLEROSIS
     Dosage: 10 MG, BID
     Route: 065
     Dates: start: 20110228, end: 2011

REACTIONS (11)
  - Headache [Unknown]
  - Fatigue [Unknown]
  - Confusional state [Unknown]
  - Disturbance in attention [Unknown]
  - Muscle tightness [Unknown]
  - Pruritus [Unknown]
  - Flushing [Unknown]
  - Discomfort [Unknown]
  - Head discomfort [Unknown]
  - Adverse drug reaction [Unknown]
  - Extra dose administered [None]

NARRATIVE: CASE EVENT DATE: 2011
